FAERS Safety Report 8617784-9 (Version None)
Quarter: 2012Q3

REPORT INFORMATION
  Report Type: 
  Country: None (occurrence: None)
  Receive Date: 20120824
  Receipt Date: 20120413
  Transmission Date: 20120928
  Serious: No
  Sender: FDA-Public Use
  Company Number: US-ASTRAZENECA-2012SE14710

PATIENT
  Age: 67 Year
  Sex: Male
  Weight: 68 kg

DRUGS (2)
  1. SYMBICORT [Suspect]
     Indication: CHRONIC OBSTRUCTIVE PULMONARY DISEASE
     Dosage: 160/4.5 MCG TWO PUFFS DAILY
     Route: 055
     Dates: start: 20120201
  2. FLOMAX [Concomitant]
     Indication: PROSTATIC DISORDER

REACTIONS (3)
  - URINARY TRACT DISORDER [None]
  - OFF LABEL USE [None]
  - PROSTATIC DISORDER [None]
